FAERS Safety Report 7584573-6 (Version None)
Quarter: 2011Q2

REPORT INFORMATION
  Report Type: 
  Country: None (occurrence: None)
  Receive Date: 20110630
  Receipt Date: 20110620
  Transmission Date: 20111010
  Serious: Yes (Hospitalization)
  Sender: FDA-Public Use
  Company Number: US-ELI_LILLY_AND_COMPANY-US201106007714

PATIENT
  Sex: Female

DRUGS (30)
  1. DURAGESIC-100 [Concomitant]
  2. PLAQUENIL [Concomitant]
  3. LORAZEPAM [Concomitant]
  4. PRILOSEC [Concomitant]
  5. WARFARIN SODIUM [Concomitant]
  6. ASCORBIC ACID [Concomitant]
  7. MIRALAX [Concomitant]
     Dosage: UNK, PRN
  8. FORTEO [Suspect]
     Indication: OSTEOPOROSIS
     Dosage: 20 UG, QD
  9. SULFASALAZINE [Concomitant]
  10. PREDNISONE [Concomitant]
  11. GABAPENTIN [Concomitant]
  12. OXYCODONE HYDROCHLORIDE [Concomitant]
  13. FOLIC ACID [Concomitant]
  14. LORATADINE [Concomitant]
  15. FORTEO [Suspect]
     Dosage: 20 UG, QD
  16. AMOXICILLIN [Concomitant]
     Dosage: UNK, PRN
  17. HUMIRA [Concomitant]
  18. CALCIUM CITRATE W/VITAMIN D NOS [Concomitant]
  19. LOVAZA [Concomitant]
  20. ZOCOR [Concomitant]
  21. SKELAXIN [Concomitant]
  22. FLONASE [Concomitant]
  23. MULTI-VITAMIN [Concomitant]
  24. ACIDOPHILUS [Concomitant]
  25. COREG [Concomitant]
  26. EFFEXOR XR [Concomitant]
  27. GEMFIBROZIL [Concomitant]
  28. LIDOCAINE [Concomitant]
  29. COLACE [Concomitant]
     Dosage: UNK, PRN
  30. VITAMIN D [Concomitant]

REACTIONS (1)
  - FOOT DEFORMITY [None]
